FAERS Safety Report 4464995-2 (Version None)
Quarter: 2004Q3

REPORT INFORMATION
  Report Type: 
  Country: None (occurrence: None)
  Receive Date: 20040929
  Receipt Date: 20040914
  Transmission Date: 20050211
  Serious: Yes (Hospitalization, Other)
  Sender: FDA-Public Use
  Company Number: USA040978153

PATIENT
  Age: 69 Year
  Sex: Female
  Weight: 89 kg

DRUGS (1)
  1. HUMULIN 70/30 [Suspect]
     Dosage: 85 U DAY
     Dates: start: 19920101

REACTIONS (2)
  - CORONARY ARTERY SURGERY [None]
  - INTERVERTEBRAL DISC PROTRUSION [None]
